FAERS Safety Report 8459541-2 (Version None)
Quarter: 2012Q2

REPORT INFORMATION
  Report Type: 
  Country: None (occurrence: None)
  Receive Date: 20120622
  Receipt Date: 20120618
  Transmission Date: 20120825
  Serious: Yes (Other)
  Sender: FDA-Public Use
  Company Number: DE-PFIZER INC-2012139364

PATIENT
  Age: 50 Year
  Sex: Female
  Weight: 58 kg

DRUGS (2)
  1. VENLAFAXINE HCL [Suspect]
     Dosage: 2100 MG (7X300MG), 1X/DAY
     Dates: start: 20120606, end: 20120606
  2. SEROQUEL [Suspect]
     Dosage: 350 MG (7X50MG), 1X/DAY
     Dates: start: 20120606, end: 20120606

REACTIONS (2)
  - INTENTIONAL SELF-INJURY [None]
  - OVERDOSE [None]
